FAERS Safety Report 25791360 (Version 2)
Quarter: 2025Q3

REPORT INFORMATION
  Report Type: Spontaneous
  Country: US (occurrence: US)
  Receive Date: 20250911
  Receipt Date: 20250924
  Transmission Date: 20251021
  Serious: Yes (Other)
  Sender: TEVA
  Company Number: US-ABBVIE-6355697

PATIENT
  Age: 63 Year
  Sex: Male

DRUGS (3)
  1. ISOTRETINOIN [Suspect]
     Active Substance: ISOTRETINOIN
     Indication: Transient acantholytic dermatosis
     Route: 065
  2. CLOBETASOL [Suspect]
     Active Substance: CLOBETASOL
     Indication: Transient acantholytic dermatosis
     Dosage: 0.05%
     Route: 065
  3. DUPILUMAB [Suspect]
     Active Substance: DUPILUMAB
     Indication: Transient acantholytic dermatosis
     Route: 065

REACTIONS (3)
  - Rash papulosquamous [Recovered/Resolved]
  - Drug ineffective [Unknown]
  - Keratoacanthoma [Recovered/Resolved]
